FAERS Safety Report 4417846-6 (Version None)
Quarter: 2004Q2

REPORT INFORMATION
  Report Type: 
  Country: None (occurrence: None)
  Receive Date: 20040621
  Receipt Date: 20040427
  Transmission Date: 20050107
  Serious: Yes (Other)
  Sender: FDA-Public Use
  Company Number: 2004029492

PATIENT
  Sex: Male

DRUGS (1)
  1. VFEND [Suspect]
     Indication: MENINGITIS CRYPTOCOCCAL
     Dosage: 400 MG (200 MG, BID)

REACTIONS (1)
  - MENINGITIS CRYPTOCOCCAL [None]
